FAERS Safety Report 6241642-0 (Version None)
Quarter: 2009Q2

REPORT INFORMATION
  Report Type: 
  Country: None (occurrence: None)
  Receive Date: 20090623
  Receipt Date: 20041122
  Transmission Date: 20091009
  Serious: Yes (Hospitalization)
  Sender: FDA-Public Use
  Company Number: CZ-ROCHE-411471

PATIENT
  Sex: Male
  Weight: 88 kg

DRUGS (55)
  1. DACLIZUMAB [Suspect]
     Route: 042
     Dates: start: 20040731
  2. DACLIZUMAB [Suspect]
     Route: 042
     Dates: start: 20040814, end: 20040827
  3. MYCOPHENOLATE MOFETIL [Suspect]
     Route: 048
     Dates: start: 20040801
  4. MYCOPHENOLATE MOFETIL [Suspect]
     Route: 048
     Dates: start: 20040809, end: 20040810
  5. MYCOPHENOLATE MOFETIL [Suspect]
     Route: 048
     Dates: start: 20040821
  6. MYCOPHENOLATE MOFETIL [Suspect]
     Route: 048
     Dates: start: 20040824, end: 20040825
  7. MYCOPHENOLATE MOFETIL [Suspect]
     Route: 048
     Dates: start: 20050113
  8. MYCOPHENOLATE MOFETIL [Suspect]
     Route: 048
     Dates: start: 20050701, end: 20050923
  9. MYCOPHENOLATE MOFETIL [Suspect]
     Route: 048
     Dates: start: 20060325
  10. MYCOPHENOLATE MOFETIL [Suspect]
     Route: 048
     Dates: start: 20060802
  11. SIROLIMUS [Suspect]
     Route: 048
     Dates: start: 20040731
  12. SIROLIMUS [Suspect]
     Route: 048
     Dates: start: 20040803
  13. SIROLIMUS [Suspect]
     Route: 048
     Dates: start: 20040819
  14. SIROLIMUS [Suspect]
     Route: 048
     Dates: start: 20040823
  15. SIROLIMUS [Suspect]
     Route: 048
     Dates: start: 20040901, end: 20040915
  16. TACROLIMUS [Suspect]
     Route: 048
     Dates: start: 20050113
  17. TACROLIMUS [Suspect]
     Route: 048
     Dates: start: 20050915
  18. TACROLIMUS [Suspect]
     Route: 048
     Dates: start: 20050919
  19. TACROLIMUS [Suspect]
     Route: 048
     Dates: start: 20050924
  20. TACROLIMUS [Suspect]
     Route: 048
     Dates: start: 20061108
  21. METHYLPREDNISOLONE SODIUM SUCCINATE [Suspect]
     Dosage: DRUG: METHYLPREDNISOLONI NATRII SUCCINAS
     Route: 042
     Dates: start: 20040731, end: 20040802
  22. PREDNISONUM [Suspect]
     Route: 048
     Dates: start: 20040802
  23. PREDNISONUM [Suspect]
     Route: 048
     Dates: start: 20040804
  24. PREDNISONUM [Suspect]
     Route: 048
     Dates: start: 20040810
  25. PREDNISONUM [Suspect]
     Route: 048
     Dates: start: 20040812
  26. PREDNISONUM [Suspect]
     Route: 048
     Dates: start: 20040821
  27. PREDNISONUM [Suspect]
     Route: 048
     Dates: start: 20040910
  28. PREDNISONUM [Suspect]
     Route: 048
     Dates: start: 20040922
  29. PREDNISONUM [Suspect]
     Route: 048
     Dates: start: 20041002
  30. PREDNISONUM [Suspect]
     Route: 048
     Dates: start: 20050113
  31. PREDNISONUM [Suspect]
     Route: 048
     Dates: start: 20050924
  32. PREDNISONUM [Suspect]
     Route: 048
     Dates: start: 20061108
  33. PREDNISONUM [Suspect]
     Route: 048
     Dates: start: 20051217
  34. PREDNISONUM [Suspect]
     Route: 048
     Dates: start: 20060114
  35. PREDNISONUM [Suspect]
     Route: 048
     Dates: start: 20060325
  36. CEFUROXIME AXETIL [Concomitant]
     Dosage: DRUG: CEFUROXIMUM AXETILI
     Route: 048
     Dates: start: 20040824, end: 20040904
  37. CEFOPERAZONE SODIUM [Concomitant]
     Dosage: DRUG: CEFOPERAZONUM NATRICUM
     Route: 042
     Dates: start: 20040809, end: 20040812
  38. CEFOPERAZONE SODIUM [Concomitant]
     Route: 042
     Dates: end: 20040914
  39. CIPROFLOXACIN [Concomitant]
     Dosage: DRUG: CIPROFLOXACINI
     Route: 042
     Dates: start: 20040731
  40. CIPROFLOXACIN [Concomitant]
     Route: 042
     Dates: start: 20040801
  41. CIPROFLOXACIN [Concomitant]
     Dosage: DRUG: CIPROFLOXACINI
     Route: 048
     Dates: start: 20040803, end: 20040808
  42. FLUCONAZOLUM [Concomitant]
     Route: 048
     Dates: start: 20040824, end: 20040903
  43. FLUCONAZOLUM [Concomitant]
     Route: 048
     Dates: start: 20050826
  44. FLUCONAZOLUM [Concomitant]
     Route: 048
     Dates: start: 20050914
  45. MEROPENEM TRIHYDRATE [Concomitant]
     Dosage: DRUG: MEROPENEMUM TRIHYDRICUM
     Route: 042
     Dates: start: 20040811
  46. MEROPENEM TRIHYDRATE [Concomitant]
     Route: 042
     Dates: start: 20040817
  47. MEROPENEM TRIHYDRATE [Concomitant]
     Route: 042
     Dates: start: 20040820, end: 20040824
  48. MEROPENEM TRIHYDRATE [Concomitant]
     Route: 042
     Dates: start: 20040913, end: 20041005
  49. METOPROLOL TARTRATE [Concomitant]
     Dosage: DRUG: METOPROLOLI TARTRAS
     Route: 048
     Dates: start: 20040801
  50. METOPROLOL TARTRATE [Concomitant]
     Route: 048
     Dates: start: 20040809
  51. METOPROLOL TARTRATE [Concomitant]
     Route: 048
     Dates: start: 20040812
  52. METOPROLOL TARTRATE [Concomitant]
     Route: 048
     Dates: start: 20040911
  53. METOPROLOL TARTRATE [Concomitant]
     Route: 048
     Dates: start: 20041001, end: 20051015
  54. METOPROLOL TARTRATE [Concomitant]
     Dosage: DRUG: METOPROLOLI TARTRAS; FORM: SYRPED
     Route: 048
     Dates: start: 20040905, end: 20040909
  55. SULFAMETHOXAZOLE AND TRIMETHOPRIM [Concomitant]
     Route: 048
     Dates: start: 20041015, end: 20050923

REACTIONS (3)
  - HEPATIC CYST INFECTION [None]
  - RENAL CYST INFECTION [None]
  - SEPSIS [None]
